FAERS Safety Report 8354486-0 (Version None)
Quarter: 2012Q2

REPORT INFORMATION
  Report Type: 
  Country: None (occurrence: None)
  Receive Date: 20120511
  Receipt Date: 20120430
  Transmission Date: 20120825
  Serious: Yes (Other)
  Sender: FDA-Public Use
  Company Number: US-ELI_LILLY_AND_COMPANY-US201204010113

PATIENT
  Sex: Female

DRUGS (3)
  1. LANTUS [Concomitant]
  2. HUMALOG [Suspect]
     Indication: DIABETES MELLITUS
     Dosage: 60 U, QD
     Route: 058
  3. HUMALOG [Suspect]
     Dosage: 60 U, QD
     Route: 058

REACTIONS (7)
  - HEADACHE [None]
  - NAUSEA [None]
  - PRODUCT ODOUR ABNORMAL [None]
  - BLOOD GLUCOSE INCREASED [None]
  - DRUG INEFFECTIVE [None]
  - BLINDNESS [None]
  - HYPERSENSITIVITY [None]
